FAERS Safety Report 8389141-4 (Version None)
Quarter: 2012Q2

REPORT INFORMATION
  Report Type: 
  Country: None (occurrence: None)
  Receive Date: 20120528
  Receipt Date: 20120523
  Transmission Date: 20120825
  Serious: Yes (Hospitalization, Other)
  Sender: FDA-Public Use
  Company Number: PHHY2012CA009917

PATIENT
  Sex: Female

DRUGS (1)
  1. SANDOSTATIN LAR [Suspect]
     Indication: NEUROENDOCRINE TUMOUR
     Dosage: 30 MG, QMO
     Route: 030
     Dates: start: 20120130

REACTIONS (12)
  - MUSCULAR WEAKNESS [None]
  - NEOPLASM MALIGNANT [None]
  - GASTROINTESTINAL ANASTOMOTIC LEAK [None]
  - PNEUMONIA ASPIRATION [None]
  - BLOOD PRESSURE INCREASED [None]
  - CHOKING [None]
  - BLOOD GLUCOSE INCREASED [None]
  - HOT FLUSH [None]
  - COUGH [None]
  - HYPERHIDROSIS [None]
  - CARDIAC DISORDER [None]
  - LIVER DISORDER [None]
